FAERS Safety Report 15826003 (Version 3)
Quarter: 2019Q1

REPORT INFORMATION
  Report Type: Spontaneous
  Country: SI (occurrence: SI)
  Receive Date: 20190115
  Receipt Date: 20190218
  Transmission Date: 20190417
  Serious: Yes (Other)
  Sender: FDA-Public Use
  Company Number: SI-MYLANLABS-2019M1002638

PATIENT
  Age: 70 Year
  Sex: Female

DRUGS (2)
  1. DEXAMETHASONE. [Suspect]
     Active Substance: DEXAMETHASONE
     Indication: PRIMARY AMYLOIDOSIS
     Dosage: UNK UNK,QCY
     Route: 065
  2. BORTEZOMIB. [Suspect]
     Active Substance: BORTEZOMIB
     Indication: PRIMARY AMYLOIDOSIS
     Dosage: UNK UNK,QCY
     Route: 065

REACTIONS (6)
  - Neuropathy peripheral [Recovered/Resolved]
  - Off label use [Unknown]
  - Fatigue [Unknown]
  - Oedema peripheral [Unknown]
  - Intentional product misuse [Unknown]
  - Constipation [Unknown]
